FAERS Safety Report 16148626 (Version 1)
Quarter: 2019Q2

REPORT INFORMATION
  Report Type: Spontaneous
  Country: BR (occurrence: BR)
  Receive Date: 20190402
  Receipt Date: 20190402
  Transmission Date: 20190711
  Serious: Yes (Other)
  Sender: FDA-Public Use
  Company Number: BR-JNJFOC-20190345609

PATIENT
  Age: 40 Year
  Sex: Male

DRUGS (4)
  1. XARELTO [Suspect]
     Active Substance: RIVAROXABAN
     Indication: SCROTAL CANCER
     Route: 048
     Dates: start: 20190216, end: 20190308
  2. XARELTO [Suspect]
     Active Substance: RIVAROXABAN
     Indication: SCROTAL CANCER
     Route: 048
     Dates: start: 20190309
  3. XARELTO [Suspect]
     Active Substance: RIVAROXABAN
     Indication: TESTICULAR OPERATION
     Route: 048
     Dates: start: 20190309
  4. XARELTO [Suspect]
     Active Substance: RIVAROXABAN
     Indication: TESTICULAR OPERATION
     Route: 048
     Dates: start: 20190216, end: 20190308

REACTIONS (6)
  - Product use in unapproved indication [Unknown]
  - Scrotal pain [Not Recovered/Not Resolved]
  - Hypertension [Not Recovered/Not Resolved]
  - Thrombosis [Not Recovered/Not Resolved]
  - Testicular pain [Not Recovered/Not Resolved]
  - Off label use [Unknown]

NARRATIVE: CASE EVENT DATE: 20190216
